FAERS Safety Report 9396246 (Version 1)
Quarter: 2013Q3

REPORT INFORMATION
  Report Type: Spontaneous
  Country: JP (occurrence: JP)
  Receive Date: 20130711
  Receipt Date: 20130711
  Transmission Date: 20140515
  Serious: Yes (Hospitalization)
  Sender: FDA-Public Use
  Company Number: JP-ELI_LILLY_AND_COMPANY-JP201307001519

PATIENT
  Sex: Female

DRUGS (3)
  1. FORTEO [Suspect]
     Route: 058
  2. VITAMIN D                          /00107901/ [Concomitant]
  3. VITAMIN K                          /00032401/ [Concomitant]

REACTIONS (2)
  - Myocardial infarction [Unknown]
  - Cardiac failure [Unknown]
